FAERS Safety Report 9548144 (Version 1)
Quarter: 2013Q3

REPORT INFORMATION
  Report Type: Spontaneous
  Country: US (occurrence: None)
  Receive Date: 20130710
  Receipt Date: 20130710
  Transmission Date: 20140515
  Serious: Yes (Other)
  Sender: FDA-Public Use
  Company Number: US-ME-2012P1064906

PATIENT
  Age: 14 Year
  Sex: Female
  Weight: 74.84 kg

DRUGS (2)
  1. SOLODYN [Suspect]
     Indication: ACNE
     Dosage: 1 IN 1 D, ORAL
     Route: 048
     Dates: start: 20121018, end: 20121110
  2. ZIANA [Suspect]
     Indication: ACNE
     Dosage: 2 IN 1 D,TOPICAL
     Route: 061
     Dates: start: 20121018, end: 20130205

REACTIONS (2)
  - Drug hypersensitivity [None]
  - Drug ineffective [None]
